FAERS Safety Report 9776271 (Version 1)
Quarter: 2013Q4

REPORT INFORMATION
  Report Type: Spontaneous
  Country: CA (occurrence: CA)
  Receive Date: 20131220
  Receipt Date: 20131220
  Transmission Date: 20140711
  Serious: Yes (Hospitalization)
  Sender: FDA-Public Use
  Company Number: CA-B.I. PHARMACEUTICALS,INC./RIDGEFIELD-2013-BI-42476CN

PATIENT
  Age: 85 Year
  Sex: Male
  Weight: 86 kg

DRUGS (12)
  1. PRADAX [Suspect]
     Dosage: 220 MG
     Route: 048
  2. ASA [Suspect]
     Dosage: 81 MG
     Route: 048
  3. BRILINTA [Suspect]
     Dosage: 180 MG
  4. PLAVIX [Suspect]
     Dosage: 75 MG
     Route: 048
  5. ATORVASTATIN CALCIUM [Concomitant]
  6. AZITHROMYCIN [Concomitant]
  7. ENOXAPARIN [Concomitant]
     Dosage: FORMULATION: INJECTION
  8. FUROSEMIDE [Concomitant]
  9. METOPROLOL [Concomitant]
  10. PANTOPRAZOLE [Concomitant]
  11. PERINDOPRIL [Concomitant]
  12. TAZOCIN [Concomitant]
     Dosage: FORMULATION: POWDER FOR SOLUTION
     Route: 042

REACTIONS (9)
  - Pneumonia [Recovered/Resolved]
  - Pulmonary haemorrhage [Recovered/Resolved]
  - Pulmonary oedema [Recovered/Resolved]
  - Creatinine renal clearance decreased [Recovered/Resolved]
  - White blood cell count increased [Recovered/Resolved]
  - Pyrexia [Recovered/Resolved]
  - Haemoptysis [Recovered/Resolved]
  - Dyspnoea [Recovered/Resolved]
  - Cough [Recovered/Resolved]
